FAERS Safety Report 6917201 (Version 5)
Quarter: 2012Q4

REPORT INFORMATION
  Report Type: 
  Country: CA (occurrence: CA)
  Receive Date: 20090224
  Receipt Date: 20121111
  Transmission Date: 20130627
  Serious: Yes (Other)
  Sender: FDA-Public Use
  Company Number: PHHY2009CA05648

PATIENT
  Sex: Female

DRUGS (2)
  1. SANDOSTATIN LAR [Suspect]
     Indication: ACROMEGALY
     Dosage: 30 mg, QMO
     Route: 030
     Dates: start: 20071227, end: 20090414
  2. PROPYLTHIOURACIL [Concomitant]

REACTIONS (7)
  - Depression [Not Recovered/Not Resolved]
  - Deformity [Not Recovered/Not Resolved]
  - Blood pressure increased [Unknown]
  - Balance disorder [Unknown]
  - Alopecia [Unknown]
  - Nausea [Unknown]
  - Dizziness [Unknown]
